FAERS Safety Report 5047084-8 (Version None)
Quarter: 2006Q3

REPORT INFORMATION
  Report Type: 
  Country: None (occurrence: None)
  Receive Date: 20060710
  Receipt Date: 20060420
  Transmission Date: 20061208
  Serious: No
  Sender: FDA-Public Use
  Company Number: JP-BOEHRINGER INGELHEIM PHARMACEUTICALS, INC.-2006-BP-04730NB

PATIENT
  Sex: Male

DRUGS (12)
  1. MICARDIS [Suspect]
     Indication: HYPERTENSION
     Route: 048
     Dates: start: 20050907
  2. LIPITOR [Suspect]
     Indication: HYPERLIPIDAEMIA
     Route: 048
     Dates: start: 20050907
  3. DORNER [Suspect]
     Indication: ARTERIOSCLEROSIS OBLITERANS
     Route: 048
     Dates: start: 20050913
  4. PANALDINE [Suspect]
     Indication: ARTERIOSCLEROSIS OBLITERANS
     Route: 048
     Dates: start: 20050913
  5. AMARYL [Concomitant]
     Indication: DIABETES MELLITUS
     Route: 048
     Dates: start: 20050907
  6. NORVASC [Concomitant]
     Indication: HYPERTENSION
     Route: 048
     Dates: start: 20050907
  7. PROTECADIN [Concomitant]
     Indication: ARTERIOSCLEROSIS OBLITERANS
     Route: 048
     Dates: start: 20050913
  8. WARFARIN SODIUM [Concomitant]
     Indication: ARTERIOSCLEROSIS OBLITERANS
     Route: 048
     Dates: start: 20051217
  9. ACTOS [Concomitant]
     Indication: DIABETES MELLITUS
     Route: 048
     Dates: start: 20050907
  10. LIPITOR [Concomitant]
     Route: 048
     Dates: start: 20050907
  11. DORNER [Concomitant]
     Route: 048
  12. PANALDINE [Concomitant]
     Route: 048
     Dates: start: 20050913

REACTIONS (1)
  - BLOOD URINE PRESENT [None]
